FAERS Safety Report 12465985 (Version 1)
Quarter: 2016Q2

REPORT INFORMATION
  Report Type: Spontaneous
  Country: NL (occurrence: NL)
  Receive Date: 20160614
  Receipt Date: 20160614
  Transmission Date: 20160815
  Serious: Yes (Death)
  Sender: FDA-Public Use
  Company Number: NL-TEVA-667766ISR

PATIENT
  Sex: Female

DRUGS (1)
  1. FENTANYL TEVA PLEISTER [Suspect]
     Active Substance: FENTANYL
     Route: 062

REACTIONS (4)
  - Circumstance or information capable of leading to medication error [Unknown]
  - Physical product label issue [Unknown]
  - Death [Fatal]
  - Accidental exposure to product [Unknown]
